FAERS Safety Report 4279538-6 (Version None)
Quarter: 2004Q1

REPORT INFORMATION
  Report Type: 
  Country: None (occurrence: None)
  Receive Date: 20040123
  Receipt Date: 20040112
  Transmission Date: 20041129
  Serious: Yes (Other)
  Sender: FDA-Public Use
  Company Number: 2003124529

PATIENT
  Age: 21 Year
  Sex: Female
  Weight: 54.4316 kg

DRUGS (1)
  1. GEODON [Suspect]
     Indication: SCHIZOPHRENIA
     Dosage: 240 MG (BID), ORAL
     Route: 048
     Dates: start: 20020901

REACTIONS (5)
  - DIFFICULTY IN WALKING [None]
  - GRUNTING [None]
  - JOINT LOCK [None]
  - MOTOR DYSFUNCTION [None]
  - SPEECH DISORDER [None]
